FAERS Safety Report 4666575-2 (Version None)
Quarter: 2005Q2

REPORT INFORMATION
  Report Type: 
  Country: None (occurrence: None)
  Receive Date: 20050517
  Receipt Date: 20050503
  Transmission Date: 20051028
  Serious: Yes (Hospitalization)
  Sender: FDA-Public Use
  Company Number: USA030330430

PATIENT
  Age: 61 Year
  Sex: Female
  Weight: 95 kg

DRUGS (2)
  1. HUMULIN R [Suspect]
     Indication: DIABETES MELLITUS
     Dosage: 10 U DAY
  2. HUMULIN-HUMAN NPH INSULIN (RDNA) (HUMAN INSUILIN (RD [Suspect]
     Indication: DIABETES MELLITUS

REACTIONS (14)
  - BLOOD GLUCOSE INCREASED [None]
  - BLOOD PRESSURE INCREASED [None]
  - CATARACT [None]
  - CELLULITIS [None]
  - COUGH [None]
  - DEHYDRATION [None]
  - DIABETIC KETOACIDOSIS [None]
  - DIARRHOEA [None]
  - DRUG TOXICITY [None]
  - LASER THERAPY [None]
  - NAUSEA [None]
  - SINUSITIS [None]
  - SKIN ULCER [None]
  - VOMITING [None]
